FAERS Safety Report 9885731 (Version 1)
Quarter: 2014Q1

REPORT INFORMATION
  Report Type: Report from Study
  Country: ZM (occurrence: ZM)
  Receive Date: 20140210
  Receipt Date: 20140210
  Transmission Date: 20141002
  Serious: Yes (Death, Other)
  Sender: FDA-Public Use
  Company Number: PHHY2014ZM014924

PATIENT
  Age: 28 Year
  Sex: Male

DRUGS (1)
  1. GLIVEC [Suspect]
     Indication: CHRONIC MYELOID LEUKAEMIA
     Dosage: 400 MG, DAILY
     Route: 048
     Dates: start: 20130626, end: 20130820

REACTIONS (3)
  - Haemorrhage [Fatal]
  - Sepsis [Fatal]
  - Pancytopenia [Unknown]
